FAERS Safety Report 8329129-2 (Version None)
Quarter: 2012Q2

REPORT INFORMATION
  Report Type: 
  Country: None (occurrence: None)
  Receive Date: 20120502
  Receipt Date: 20101018
  Transmission Date: 20120825
  Serious: No
  Sender: FDA-Public Use
  Company Number: US-TEVA-2010005477

PATIENT
  Sex: Female
  Weight: 59.928 kg

DRUGS (4)
  1. ADDERALL 5 [Concomitant]
     Indication: NARCOLEPSY
     Dosage: 60 MILLIGRAM;
     Route: 048
  2. CLARITIN [Concomitant]
     Indication: RHINITIS ALLERGIC
  3. NUVIGIL [Suspect]
     Indication: NARCOLEPSY
     Dosage: 150 MILLIGRAM;
     Route: 048
     Dates: start: 20100901, end: 20100928
  4. NUVIGIL [Suspect]
     Dosage: 250 MILLIGRAM;
     Route: 048
     Dates: start: 20100929, end: 20101012

REACTIONS (1)
  - RASH GENERALISED [None]
